FAERS Safety Report 4988255-6 (Version None)
Quarter: 2006Q2

REPORT INFORMATION
  Report Type: 
  Country: None (occurrence: None)
  Receive Date: 20060425
  Receipt Date: 20060412
  Transmission Date: 20061013
  Serious: Yes (Hospitalization)
  Sender: FDA-Public Use
  Company Number: MEDI-0004424

PATIENT
  Age: 5 Month

DRUGS (6)
  1. SYNAGIS [Suspect]
     Indication: ANTIVIRAL PROPHYLAXIS
     Dosage: 95 + 45 + 60 + 70 + 110 MG, 1 IN 30 D, INTRAMUSCULAR - SEE IMAGE
     Route: 030
     Dates: start: 20050922, end: 20051210
  2. SYNAGIS [Suspect]
     Indication: ANTIVIRAL PROPHYLAXIS
     Dosage: 95 + 45 + 60 + 70 + 110 MG, 1 IN 30 D, INTRAMUSCULAR - SEE IMAGE
     Route: 030
     Dates: start: 20060210, end: 20060210
  3. SYNAGIS [Suspect]
     Indication: ANTIVIRAL PROPHYLAXIS
     Dosage: 95 + 45 + 60 + 70 + 110 MG, 1 IN 30 D, INTRAMUSCULAR - SEE IMAGE
     Route: 030
     Dates: start: 20050922
  4. SYNAGIS [Suspect]
     Indication: ANTIVIRAL PROPHYLAXIS
     Dosage: 95 + 45 + 60 + 70 + 110 MG, 1 IN 30 D, INTRAMUSCULAR - SEE IMAGE
     Route: 030
     Dates: start: 20051011
  5. SYNAGIS [Suspect]
     Indication: ANTIVIRAL PROPHYLAXIS
     Dosage: 95 + 45 + 60 + 70 + 110 MG, 1 IN 30 D, INTRAMUSCULAR - SEE IMAGE
     Route: 030
     Dates: start: 20051109
  6. SYNAGIS [Suspect]
     Indication: ANTIVIRAL PROPHYLAXIS
     Dosage: 95 + 45 + 60 + 70 + 110 MG, 1 IN 30 D, INTRAMUSCULAR - SEE IMAGE
     Route: 030
     Dates: start: 20060117

REACTIONS (2)
  - GASTROENTERITIS [None]
  - OESOPHAGEAL PAIN [None]
